FAERS Safety Report 7750867-4 (Version None)
Quarter: 2011Q3

REPORT INFORMATION
  Report Type: 
  Country: None (occurrence: None)
  Receive Date: 20110914
  Receipt Date: 20110912
  Transmission Date: 20111222
  Serious: Yes (Other)
  Sender: FDA-Public Use
  Company Number: US-EISAI INC-E3810-04870-SPO-US

PATIENT
  Sex: Female
  Weight: 96 kg

DRUGS (3)
  1. LASIX [Concomitant]
     Route: 048
     Dates: start: 19960101
  2. ACIPHEX [Suspect]
     Route: 048
     Dates: end: 20110701
  3. COUMADIN [Concomitant]
     Indication: ATRIAL FIBRILLATION
     Route: 048
     Dates: start: 20030101

REACTIONS (3)
  - OESOPHAGITIS [None]
  - GASTRIC POLYPS [None]
  - OESOPHAGEAL PAIN [None]
